FAERS Safety Report 6069007-5 (Version None)
Quarter: 2009Q1

REPORT INFORMATION
  Report Type: 
  Country: None (occurrence: None)
  Receive Date: 20090206
  Receipt Date: 20090128
  Transmission Date: 20090719
  Serious: Yes (Other)
  Sender: FDA-Public Use
  Company Number: US-ELI_LILLY_AND_COMPANY-US200901005054

PATIENT
  Sex: Male
  Weight: 97.506 kg

DRUGS (16)
  1. BYETTA [Suspect]
     Indication: TYPE 2 DIABETES MELLITUS
     Dosage: 5 UG, 2/D
     Route: 058
     Dates: start: 20080328, end: 20080401
  2. BYETTA [Suspect]
     Dosage: 10 UG, 2/D
     Route: 058
     Dates: start: 20080401, end: 20081024
  3. AMARYL [Concomitant]
     Indication: TYPE 2 DIABETES MELLITUS
     Dosage: 4 MG, 2/D
  4. ACTOS                                   /AUS/ [Concomitant]
     Indication: TYPE 2 DIABETES MELLITUS
     Dosage: 15 MG, DAILY (1/D)
  5. GLUCOPHAGE [Concomitant]
     Indication: TYPE 2 DIABETES MELLITUS
     Dosage: 500 MG, 2/D
  6. ASPIRIN [Concomitant]
     Indication: ANTICOAGULANT THERAPY
     Dosage: 81 MG, DAILY (1/D)
  7. CARDIZEM CD [Concomitant]
     Indication: CARDIAC DISORDER
     Dosage: 180 MG, DAILY (1/D)
  8. CARDURA [Concomitant]
     Indication: CARDIAC DISORDER
     Dosage: 4 MG, 2/D
  9. CATAPRESSAN [Concomitant]
     Indication: HYPERTENSION
     Dosage: 0.2 MG, WEEKLY (1/W)
  10. COUMADIN [Concomitant]
     Indication: ANTICOAGULANT THERAPY
     Dosage: 6 MG, DAILY (1/D)
  11. CRESTOR [Concomitant]
     Indication: BLOOD CHOLESTEROL INCREASED
     Dosage: 40 MG, DAILY (1/D)
  12. DARVOCET-N 100 [Concomitant]
     Indication: ARTHRITIS
     Dosage: UNK, AS NEEDED
  13. FUROSEMIDE [Concomitant]
     Indication: DIURETIC THERAPY
     Dosage: 80 MG, DAILY (1/D)
  14. PLAVIX [Concomitant]
     Indication: ANTICOAGULANT THERAPY
     Dosage: 75 MG, DAILY (1/D)
  15. TOPROL-XL [Concomitant]
     Indication: CARDIAC DISORDER
     Dosage: 100 MG, DAILY (1/D)
  16. TRENTAL [Concomitant]
     Indication: CARDIAC DISORDER
     Dosage: 400 MG, DAILY (1/D)

REACTIONS (4)
  - FATIGUE [None]
  - GALLBLADDER POLYP [None]
  - PANCREATITIS [None]
  - WEIGHT DECREASED [None]
